FAERS Safety Report 6867630-9 (Version None)
Quarter: 2010Q3

REPORT INFORMATION
  Report Type: 
  Country: None (occurrence: None)
  Receive Date: 20100722
  Receipt Date: 20091007
  Transmission Date: 20110219
  Serious: No
  Sender: FDA-Public Use
  Company Number: US-BAUSCH-2009BL005093

PATIENT
  Age: 24 Year
  Sex: Female

DRUGS (5)
  1. OPCON-A [Suspect]
     Indication: EYE IRRITATION
     Route: 047
     Dates: start: 20091007, end: 20091007
  2. RENU [Concomitant]
  3. METFORMIN [Concomitant]
  4. YASMIN /SWE/ [Concomitant]
  5. SPIRONOLACTONE [Concomitant]
     Indication: ACNE

REACTIONS (1)
  - MYDRIASIS [None]
